FAERS Safety Report 8325528-3 (Version None)
Quarter: 2012Q2

REPORT INFORMATION
  Report Type: 
  Country: None (occurrence: None)
  Receive Date: 20120501
  Receipt Date: 20120424
  Transmission Date: 20120825
  Serious: Yes (Disabling, Other)
  Sender: FDA-Public Use
  Company Number: US-UCBSA-053025

PATIENT
  Age: 53 Year
  Sex: Female
  Weight: 70.7 kg

DRUGS (10)
  1. LEVOTHYROXINE SODIUM [Concomitant]
     Indication: THYROID DISORDER
  2. LEVOTHYROXINE SODIUM [Concomitant]
     Dosage: DAILY DOSE: 50 MG
     Route: 048
  3. MOBIC [Concomitant]
     Indication: SPONDYLITIS
     Dosage: DAILY DOSE: 15 MG
     Route: 048
  4. LYRICA [Suspect]
     Indication: NEUROPATHY PERIPHERAL
     Dosage: ONCE A DAY
     Dates: start: 20111201
  5. TRIAMTERENE AND HYDROCHLOROTHIAZIDE [Concomitant]
     Indication: HYPERTENSION
     Route: 048
  6. LYRICA [Suspect]
     Dosage: DAILY DOSE: 75 MG
     Route: 048
     Dates: start: 20111101, end: 20110101
  7. LORTAB [Suspect]
     Indication: PAIN IN EXTREMITY
     Dosage: DAILY DOSE:7.5 MG
     Route: 048
  8. LORTAB [Suspect]
     Dosage: DAILY DOSE:10 MG
     Route: 048
  9. LORTAB [Suspect]
     Dosage: DAILY DOSE:10 MG
     Route: 048
  10. LORTAB [Suspect]
     Indication: OSTEOARTHRITIS
     Dosage: DAILY DOSE:7.5 MG
     Route: 048

REACTIONS (8)
  - ASTHENIA [None]
  - DYSSTASIA [None]
  - FEELING ABNORMAL [None]
  - SLOW RESPONSE TO STIMULI [None]
  - IMPAIRED DRIVING ABILITY [None]
  - SOMNOLENCE [None]
  - WRONG TECHNIQUE IN DRUG USAGE PROCESS [None]
  - FEELING DRUNK [None]
